FAERS Safety Report 5077967-4 (Version None)
Quarter: 2006Q3

REPORT INFORMATION
  Report Type: 
  Country: None (occurrence: None)
  Receive Date: 20060811
  Receipt Date: 20060801
  Transmission Date: 20061208
  Serious: Yes (Other)
  Sender: FDA-Public Use
  Company Number: PHFR2006GB02401

PATIENT
  Sex: Male

DRUGS (2)
  1. LAMISIL [Suspect]
     Indication: FUNGAL INFECTION
     Route: 065
  2. LAMOTRIGINE [Concomitant]
     Route: 065

REACTIONS (1)
  - EPILEPSY [None]
